FAERS Safety Report 9691545 (Version 2)
Quarter: 2013Q4

REPORT INFORMATION
  Report Type: Spontaneous
  Country: US (occurrence: US)
  Receive Date: 20131115
  Receipt Date: 20131122
  Transmission Date: 20140711
  Serious: Yes (Other)
  Sender: FDA-Public Use
  Company Number: US-009507513-1311USA005492

PATIENT
  Age: 45 Year
  Sex: Female

DRUGS (1)
  1. SINGULAIR [Suspect]
     Indication: RHINITIS ALLERGIC
     Dosage: 1 DOSE
     Route: 048

REACTIONS (5)
  - Bronchospasm [Unknown]
  - Chest discomfort [Unknown]
  - Panic attack [Unknown]
  - Precocious puberty [Unknown]
  - Skin odour abnormal [Unknown]
